FAERS Safety Report 9681975 (Version 1)
Quarter: 2013Q4

REPORT INFORMATION
  Report Type: Spontaneous
  Country: IL (occurrence: IL)
  Receive Date: 20131111
  Receipt Date: 20131111
  Transmission Date: 20140711
  Serious: Yes (Other)
  Sender: FDA-Public Use
  Company Number: IL-JHP PHARMACEUTICALS, LLC-JHP201300686

PATIENT
  Sex: 0

DRUGS (1)
  1. COLY-MYCIN M PARENTERAL [Suspect]
     Indication: BACTERIAL INFECTION
     Dosage: UNK
     Route: 042

REACTIONS (1)
  - Convulsion [Unknown]
